FAERS Safety Report 19010380 (Version 1)
Quarter: 2021Q1

REPORT INFORMATION
  Report Type: Spontaneous
  Country: TH (occurrence: TH)
  Receive Date: 20210316
  Receipt Date: 20210316
  Transmission Date: 20210420
  Serious: Yes (Other)
  Sender: FDA-Public Use
  Company Number: TH-TEVA-2021-TH-1890602

PATIENT
  Age: 78 Year
  Sex: Male

DRUGS (6)
  1. OXALIPLATIN. [Suspect]
     Active Substance: OXALIPLATIN
     Indication: COLORECTAL CANCER RECURRENT
     Dosage: CYCLE 1 (FOLFOX REGIMEN)
     Route: 065
  2. 5?FLUOROURACIL [Suspect]
     Active Substance: FLUOROURACIL
     Dosage: CYCLE 2; CONTINUOUS INFUSION (FOLFOX REGIMEN)
     Route: 041
  3. OXALIPLATIN. [Suspect]
     Active Substance: OXALIPLATIN
     Dosage: CYCLE 3 (FOLFOX REGIMEN)
     Route: 065
  4. FOLINIC ACID [Suspect]
     Active Substance: LEUCOVORIN
     Indication: COLORECTAL CANCER RECURRENT
     Dosage: FOLFOX REGIMEN
     Route: 065
  5. 5?FLUOROURACIL [Suspect]
     Active Substance: FLUOROURACIL
     Dosage: CYCLES 1 AND 3; CONTINUOUS INFUSION (FOLFOX REGIMEN)
     Route: 041
  6. 5?FLUOROURACIL [Suspect]
     Active Substance: FLUOROURACIL
     Indication: COLORECTAL CANCER RECURRENT
     Dosage: BOLUS DOSE DURING CYCLES 1, 2 AND 3 (FOLFOX REGIMEN)
     Route: 040

REACTIONS (3)
  - Lactic acidosis [Recovering/Resolving]
  - Acute kidney injury [Recovering/Resolving]
  - Encephalopathy [Recovering/Resolving]
